FAERS Safety Report 24671633 (Version 6)
Quarter: 2025Q3

REPORT INFORMATION
  Report Type: Report from Study
  Country: EU (occurrence: EU)
  Receive Date: 20241127
  Receipt Date: 20250813
  Transmission Date: 20251020
  Serious: Yes (Death)
  Sender: PFIZER
  Company Number: EU-PFIZER INC-PV202400154036

PATIENT
  Age: 72 Year
  Sex: Female

DRUGS (9)
  1. PALBOCICLIB [Suspect]
     Active Substance: PALBOCICLIB
     Indication: Breast cancer
     Route: 048
     Dates: start: 20230403, end: 20230618
  2. PALBOCICLIB [Suspect]
     Active Substance: PALBOCICLIB
     Route: 048
     Dates: start: 20230703
  3. PALBOCICLIB [Suspect]
     Active Substance: PALBOCICLIB
     Dates: start: 20240923
  4. LETROZOLE [Suspect]
     Active Substance: LETROZOLE
     Indication: Breast cancer
     Dosage: 2.5 MG, DAILY
     Route: 048
     Dates: start: 20230403
  5. LETROZOLE [Suspect]
     Active Substance: LETROZOLE
     Dosage: 2.5 MG DAILY DOSE, (LAST CYCLE 20)
     Dates: start: 20240923
  6. METFORMIN [Concomitant]
     Active Substance: METFORMIN HYDROCHLORIDE
     Indication: Prophylaxis
     Route: 048
  7. CANDESARTAN [Concomitant]
     Active Substance: CANDESARTAN
     Indication: Prophylaxis
     Route: 048
  8. METOPROLOL [Concomitant]
     Active Substance: METOPROLOL
     Indication: Prophylaxis
     Route: 048
  9. ZOLEDRONIC ACID [Concomitant]
     Active Substance: ZOLEDRONIC ACID
     Indication: Prophylaxis
     Route: 042
     Dates: start: 20230623

REACTIONS (1)
  - Death [Fatal]

NARRATIVE: CASE EVENT DATE: 20240928
